FAERS Safety Report 17460712 (Version 9)
Quarter: 2023Q2

REPORT INFORMATION
  Report Type: Spontaneous
  Country: US (occurrence: US)
  Receive Date: 20200226
  Receipt Date: 20230616
  Transmission Date: 20230722
  Serious: No
  Sender: FDA-Public Use
  Company Number: US-VERTEX PHARMACEUTICALS-2020-003400

PATIENT
  Sex: Male

DRUGS (21)
  1. TRIKAFTA [Suspect]
     Active Substance: ELEXACAFTOR\IVACAFTOR\TEZACAFTOR
     Indication: Cystic fibrosis
     Dosage: 2 ORANGE TABLES IN MORNING AND ONE BLUE TAB IN EVENING
     Route: 048
     Dates: start: 20200207
  2. ALBUTEROL SULFATE [Concomitant]
     Active Substance: ALBUTEROL SULFATE
  3. FOSAMAX [Concomitant]
     Active Substance: ALENDRONATE SODIUM
  4. ZITHROMAX [Concomitant]
     Active Substance: AZITHROMYCIN DIHYDRATE
  5. CAYSTON [Concomitant]
     Active Substance: AZTREONAM
  6. SYMBICORT [Concomitant]
     Active Substance: BUDESONIDE\FORMOTEROL FUMARATE DIHYDRATE
  7. ZYRTEC [Concomitant]
     Active Substance: CETIRIZINE HYDROCHLORIDE
  8. VITAMIN D3 [Concomitant]
     Active Substance: CHOLECALCIFEROL
  9. FOLIC ACID [Concomitant]
     Active Substance: FOLIC ACID
  10. FERROUS SULFATE [Concomitant]
     Active Substance: FERROUS SULFATE
  11. ZENPEP [Concomitant]
     Active Substance: PANCRELIPASE AMYLASE\PANCRELIPASE LIPASE\PANCRELIPASE PROTEASE
  12. SINGULAIR [Concomitant]
     Active Substance: MONTELUKAST SODIUM
  13. PRILOSEC [Concomitant]
     Active Substance: OMEPRAZOLE MAGNESIUM
  14. VITAMIN K [Concomitant]
     Active Substance: PHYTONADIONE
  15. PREDNISONE [Concomitant]
     Active Substance: PREDNISONE
  16. PULMOZYME [Concomitant]
     Active Substance: DORNASE ALFA
  17. VIOKACE [Concomitant]
     Active Substance: PANCRELIPASE AMYLASE\PANCRELIPASE LIPASE\PANCRELIPASE PROTEASE
  18. TUMS [Concomitant]
     Active Substance: CALCIUM CARBONATE
  19. PERIACTIN [Concomitant]
     Active Substance: CYPROHEPTADINE HYDROCHLORIDE
  20. ZOLOFT [Concomitant]
     Active Substance: SERTRALINE HYDROCHLORIDE
  21. REMERON [Concomitant]
     Active Substance: MIRTAZAPINE

REACTIONS (3)
  - Productive cough [Recovered/Resolved]
  - Headache [Unknown]
  - Weight decreased [Recovering/Resolving]

NARRATIVE: CASE EVENT DATE: 20200101
